FAERS Safety Report 21977971 (Version 1)
Quarter: 2023Q1

REPORT INFORMATION
  Report Type: Spontaneous
  Country: GB (occurrence: GB)
  Receive Date: 20230210
  Receipt Date: 20230210
  Transmission Date: 20230417
  Serious: Yes (Hospitalization, Other)
  Sender: FDA-Public Use
  Company Number: GB-PFIZER INC-PV202300023158

PATIENT
  Age: 25 Year
  Sex: Female

DRUGS (1)
  1. METHYLPREDNISOLONE SODIUM SUCCINATE [Suspect]
     Active Substance: METHYLPREDNISOLONE SODIUM SUCCINATE
     Indication: Central nervous system lupus
     Dosage: 500 MG
     Route: 042

REACTIONS (3)
  - Malignant hypertension [Recovering/Resolving]
  - Cytopenia [Recovering/Resolving]
  - Thrombotic microangiopathy [Recovering/Resolving]
